FAERS Safety Report 16295851 (Version 1)
Quarter: 2019Q2

REPORT INFORMATION
  Report Type: Report from Study
  Country: IL (occurrence: IL)
  Receive Date: 20190510
  Receipt Date: 20190510
  Transmission Date: 20190711
  Serious: Yes (Hospitalization)
  Sender: FDA-Public Use
  Company Number: IL-ACTELION-A-CH2019-190000

PATIENT
  Age: 35 Year
  Sex: Male

DRUGS (5)
  1. COUMADIN [Concomitant]
     Active Substance: WARFARIN SODIUM
  2. UPTRAVI [Suspect]
     Active Substance: SELEXIPAG
     Indication: PULMONARY ARTERIAL HYPERTENSION
     Dosage: 1600 MCG, BID
     Route: 048
     Dates: end: 20190505
  3. UPTRAVI [Suspect]
     Active Substance: SELEXIPAG
     Dosage: UNK
     Route: 048
     Dates: start: 20180204
  4. VOLIBRIS [Concomitant]
     Active Substance: AMBRISENTAN
  5. REVATIO [Concomitant]
     Active Substance: SILDENAFIL CITRATE

REACTIONS (9)
  - Condition aggravated [Unknown]
  - Right atrial hypertrophy [Unknown]
  - Dyspnoea exertional [Unknown]
  - Right ventricular hypertrophy [Unknown]
  - Cardiac failure chronic [Unknown]
  - Oedema peripheral [Unknown]
  - Liver injury [Unknown]
  - Transplant evaluation [Unknown]
  - Pulmonary arterial hypertension [Unknown]

NARRATIVE: CASE EVENT DATE: 201904
